FAERS Safety Report 5772843-3 (Version None)
Quarter: 2008Q2

REPORT INFORMATION
  Report Type: 
  Country: None (occurrence: None)
  Receive Date: 20080611
  Receipt Date: 20080603
  Transmission Date: 20081010
  Serious: Yes (Hospitalization)
  Sender: FDA-Public Use
  Company Number: 163-21880-08060203

PATIENT
  Age: 71 Year
  Sex: Female

DRUGS (2)
  1. REVLIMID [Suspect]
     Indication: MULTIPLE MYELOMA
     Dosage: 25 MG, DAILY FOR 21 DAYS OUT OF 28, ORAL
     Dates: start: 20080401
  2. CYTOXAN [Concomitant]

REACTIONS (2)
  - ASTHENIA [None]
  - BLOOD CALCIUM INCREASED [None]
